FAERS Safety Report 7388681-4 (Version None)
Quarter: 2011Q2

REPORT INFORMATION
  Report Type: 
  Country: None (occurrence: None)
  Receive Date: 20110401
  Receipt Date: 20110321
  Transmission Date: 20111010
  Serious: Yes (Hospitalization)
  Sender: FDA-Public Use
  Company Number: NL-MEDIMMUNE-MEDI-0012953

PATIENT
  Sex: Female

DRUGS (2)
  1. SYNAGIS [Suspect]
     Route: 030
     Dates: start: 20110310, end: 20110310
  2. SYNAGIS [Suspect]
     Route: 030
     Dates: start: 20101021, end: 20110210

REACTIONS (7)
  - DYSPNOEA [None]
  - COUGH [None]
  - OXYGEN SATURATION DECREASED [None]
  - GASTROOESOPHAGEAL REFLUX DISEASE [None]
  - PYREXIA [None]
  - ASPIRATION [None]
  - RESPIRATORY SYNCYTIAL VIRUS TEST POSITIVE [None]
